FAERS Safety Report 14588783 (Version 2)
Quarter: 2018Q1

REPORT INFORMATION
  Report Type: Report from Study
  Country: GB (occurrence: GB)
  Receive Date: 20180301
  Receipt Date: 20180312
  Transmission Date: 20180509
  Serious: Yes (Death, Hospitalization)
  Sender: FDA-Public Use
  Company Number: GB-EXELIXIS-XL18418012622

PATIENT
  Sex: Male

DRUGS (2)
  1. BLINDED PLACEBO [Suspect]
     Active Substance: INVESTIGATIONAL PRODUCT
     Indication: TRANSITIONAL CELL CANCER OF THE RENAL PELVIS AND URETER
     Dosage: 40 MG, QD
     Route: 048
     Dates: start: 20170918, end: 20180114
  2. BLINDED XL184 [Suspect]
     Active Substance: CABOZANTINIB
     Indication: TRANSITIONAL CELL CANCER OF THE RENAL PELVIS AND URETER
     Dosage: 40 MG, QD
     Route: 048
     Dates: start: 20170918, end: 20180114

REACTIONS (1)
  - Infection [Fatal]

NARRATIVE: CASE EVENT DATE: 20180131
